FAERS Safety Report 22241813 (Version 2)
Quarter: 2023Q2

REPORT INFORMATION
  Report Type: Report from Study
  Country: US (occurrence: US)
  Receive Date: 20230421
  Receipt Date: 20230517
  Transmission Date: 20230722
  Serious: No
  Sender: FDA-Public Use
  Company Number: US-002147023-NVSC2023US090288

PATIENT
  Sex: Male

DRUGS (1)
  1. ENTRESTO [Suspect]
     Active Substance: SACUBITRIL\VALSARTAN
     Indication: Product used for unknown indication
     Dosage: 1 DOSAGE FORM, BID (49/51 MG)
     Route: 048

REACTIONS (13)
  - Dyspnoea [Recovered/Resolved]
  - Swelling [Unknown]
  - Thirst [Unknown]
  - Arthralgia [Recovered/Resolved]
  - Cardiac disorder [Recovered/Resolved]
  - Feeling abnormal [Recovered/Resolved]
  - Dysgeusia [Recovered/Resolved]
  - Pain [Recovered/Resolved]
  - Therapeutic response unexpected [Unknown]
  - Blood potassium decreased [Recovered/Resolved]
  - Fatigue [Unknown]
  - Dizziness [Unknown]
  - Drug ineffective [Unknown]
